FAERS Safety Report 12350748 (Version 1)
Quarter: 2016Q2

REPORT INFORMATION
  Report Type: Spontaneous
  Country: US (occurrence: None)
  Receive Date: 20160509
  Receipt Date: 20160509
  Transmission Date: 20160815
  Serious: No
  Sender: FDA-Public Use
  Company Number: None

PATIENT
  Age: 60 Year
  Sex: Female
  Weight: 54.43 kg

DRUGS (1)
  1. REMICADE [Suspect]
     Active Substance: INFLIXIMAB
     Indication: PSORIATIC ARTHROPATHY
     Dosage: 400MG Q 8 WEEKS IV
     Route: 042
     Dates: start: 20150202

REACTIONS (3)
  - Skin fissures [None]
  - Eczema [None]
  - Cellulitis [None]

NARRATIVE: CASE EVENT DATE: 20160401
